FAERS Safety Report 8103425-6 (Version None)
Quarter: 2012Q1

REPORT INFORMATION
  Report Type: 
  Country: None (occurrence: None)
  Receive Date: 20120201
  Receipt Date: 20120119
  Transmission Date: 20120608
  Serious: Yes (Hospitalization, Other)
  Sender: FDA-Public Use
  Company Number: PHHY2012NO004820

PATIENT
  Sex: Female

DRUGS (2)
  1. VALSARTAN  AND HYDROCHLOROTHIAZIDE [Suspect]
     Indication: HYPERTENSION
     Dosage: 160 MG, QD
     Route: 048
     Dates: start: 20111125, end: 20111226
  2. LEVOTHYROXINE SODIUM [Concomitant]
     Indication: HYPOTHYROIDISM
     Dosage: 35 UG, QD
     Route: 048

REACTIONS (14)
  - CIRCADIAN RHYTHM SLEEP DISORDER [None]
  - FATIGUE [None]
  - DELIRIUM [None]
  - LISTLESS [None]
  - CONFUSIONAL STATE [None]
  - INJURY [None]
  - GENERAL PHYSICAL HEALTH DETERIORATION [None]
  - HYPONATRAEMIA [None]
  - FALL [None]
  - KLEBSIELLA INFECTION [None]
  - TREMOR [None]
  - ASTHENIA [None]
  - URINARY TRACT INFECTION [None]
  - COGNITIVE DISORDER [None]
